FAERS Safety Report 8517894-0 (Version None)
Quarter: 2012Q3

REPORT INFORMATION
  Report Type: 
  Country: None (occurrence: None)
  Receive Date: 20120718
  Receipt Date: 20110714
  Transmission Date: 20120928
  Serious: No
  Sender: FDA-Public Use
  Company Number: US-BRISTOL-MYERS SQUIBB COMPANY-15878960

PATIENT
  Sex: Female

DRUGS (1)
  1. COUMADIN [Suspect]
     Dosage: 5MG ON MON,WED,FRI 1.5MG ON OTHER DAYS

REACTIONS (4)
  - MALAISE [None]
  - FATIGUE [None]
  - INTERNATIONAL NORMALISED RATIO FLUCTUATION [None]
  - DIARRHOEA [None]
